FAERS Safety Report 9031349 (Version 1)
Quarter: 2013Q1

REPORT INFORMATION
  Report Type: Spontaneous
  Country: US (occurrence: US)
  Receive Date: 20130124
  Receipt Date: 20130124
  Transmission Date: 20140127
  Serious: Yes (Hospitalization)
  Sender: FDA-Public Use
  Company Number: US-JNJFOC-20121114785

PATIENT
  Age: 71 None
  Sex: Male

DRUGS (3)
  1. REMICADE [Suspect]
     Indication: COLITIS ULCERATIVE
     Route: 042
     Dates: start: 20121120
  2. REMICADE [Suspect]
     Indication: COLITIS ULCERATIVE
     Route: 042
  3. REMICADE [Suspect]
     Indication: COLITIS ULCERATIVE
     Route: 042
     Dates: start: 2009

REACTIONS (5)
  - Serum sickness-like reaction [Recovered/Resolved]
  - Adverse drug reaction [Recovering/Resolving]
  - Paraesthesia [Unknown]
  - Sunburn [Unknown]
  - Infusion related reaction [Unknown]
